FAERS Safety Report 19735559 (Version 4)
Quarter: 2022Q2

REPORT INFORMATION
  Report Type: Spontaneous
  Country: US (occurrence: US)
  Receive Date: 20210823
  Receipt Date: 20220623
  Transmission Date: 20220721
  Serious: Yes (Other)
  Sender: FDA-Public Use
  Company Number: US-PFIZER INC-2021657143

PATIENT
  Age: 58 Year
  Sex: Female

DRUGS (2)
  1. XELJANZ XR [Suspect]
     Active Substance: TOFACITINIB CITRATE
     Indication: Rheumatoid arthritis
     Dosage: 11 MG, DAILY
     Route: 048
     Dates: start: 202102
  2. IRON AND VITAMIN C [Concomitant]
     Dosage: UNK

REACTIONS (6)
  - Hip surgery [Unknown]
  - Inappropriate schedule of product administration [Unknown]
  - Joint stiffness [Unknown]
  - Depression [Unknown]
  - Blood iron decreased [Unknown]
  - Discouragement [Unknown]

NARRATIVE: CASE EVENT DATE: 20220420
